FAERS Safety Report 4825312-9 (Version None)
Quarter: 2005Q4

REPORT INFORMATION
  Report Type: 
  Country: None (occurrence: None)
  Receive Date: 20051110
  Receipt Date: 20051110
  Transmission Date: 20060501
  Serious: Yes (Other)
  Sender: FDA-Public Use
  Company Number: None

PATIENT
  Age: 52 Year
  Sex: Female

DRUGS (9)
  1. CLONIDINE [Suspect]
     Indication: ANXIETY
     Dosage: 1/2 TAB PO TID- QID
     Route: 048
     Dates: start: 20010801
  2. CLONIDINE [Suspect]
     Indication: HYPERTENSION
     Dosage: 1/2 TAB PO TID- QID
     Route: 048
     Dates: start: 20010801
  3. SEROQUEL [Concomitant]
  4. LEXAPREO [Concomitant]
  5. ZYPREXA [Concomitant]
  6. DEPAKOTE [Concomitant]
  7. DILANTIN [Concomitant]
  8. LABETALOL [Concomitant]
  9. PREMARIN [Concomitant]

REACTIONS (4)
  - AGITATION [None]
  - TACHYPNOEA [None]
  - THERAPEUTIC RESPONSE UNEXPECTED WITH DRUG SUBSTITUTION [None]
  - TREMOR [None]
